FAERS Safety Report 25274967 (Version 1)
Quarter: 2025Q2

REPORT INFORMATION
  Report Type: Spontaneous
  Country: US (occurrence: US)
  Receive Date: 20250506
  Receipt Date: 20250506
  Transmission Date: 20250717
  Serious: Yes (Hospitalization)
  Sender: FERRING
  Company Number: US-FERRINGPH-2025FE02142

PATIENT

DRUGS (1)
  1. ADSTILADRIN [Suspect]
     Active Substance: NADOFARAGENE FIRADENOVEC-VNCG
     Indication: Bladder transitional cell carcinoma
     Route: 065

REACTIONS (1)
  - Infection [Recovered/Resolved]
